FAERS Safety Report 13965613 (Version 18)
Quarter: 2018Q2

REPORT INFORMATION
  Report Type: Spontaneous
  Country: DE (occurrence: DE)
  Receive Date: 20170913
  Receipt Date: 20180619
  Transmission Date: 20180711
  Serious: Yes (Hospitalization, Other)
  Sender: FDA-Public Use
  Company Number: DE-PFIZER INC-2017390028

PATIENT
  Age: 71 Year
  Sex: Male
  Weight: 125 kg

DRUGS (22)
  1. ASS 1 A PHARMA [Concomitant]
     Dosage: 100 MG, ONCE DAILY
     Route: 048
  2. PANTOPRAZOLE [Concomitant]
     Active Substance: PANTOPRAZOLE
     Dosage: 40 MG, 2X/DAY
     Route: 048
  3. PANTOPRAZOLE ABZ [Concomitant]
     Dosage: 40 MG, TWICE DAILY
     Route: 048
  4. RAMIPRIL. [Concomitant]
     Active Substance: RAMIPRIL
     Dosage: UNK, (2.5, UNIT: NOT PROVIDED) 2.5 OT
     Route: 048
  5. MOVICOL [Concomitant]
     Active Substance: POLYETHYLENE GLYCOL 3350\POTASSIUM CHLORIDE\SODIUM BICARBONATE\SODIUM CHLORIDE
     Dosage: 2 DF, UNK
     Route: 048
  6. AMITRIPTYLIN [Suspect]
     Active Substance: AMITRIPTYLINE
     Indication: NEURALGIA
     Dosage: 50 MG, ONCE DAILY
     Route: 048
     Dates: start: 20161123, end: 20161126
  7. MORPHIN AL [Suspect]
     Active Substance: MORPHINE SULFATE
     Dosage: 100 MG, 1X/DAY (100MG, 3X/DAY)
     Route: 048
     Dates: start: 2007
  8. LYRICA [Suspect]
     Active Substance: PREGABALIN
     Dosage: UNK, ONCE DAILY
     Route: 048
     Dates: end: 20170207
  9. SEVREDOL [Suspect]
     Active Substance: MORPHINE
     Indication: PAIN
     Dosage: UNK, AS NEEDED  (MAXIMUM TWICE A DAY)
     Route: 048
  10. MORPHIN AL [Suspect]
     Active Substance: MORPHINE SULFATE
     Dosage: 60 MG, 1X/DAY (60 MG, 2X/DAY)
     Route: 048
     Dates: start: 20070101
  11. TORASEMID ABZ [Concomitant]
     Dosage: 25 MG, ONCE DAILY
     Route: 048
  12. LYRICA [Suspect]
     Active Substance: PREGABALIN
     Dosage: 50 MG, 1X/DAY (50 MG, 2X/DAY)
     Route: 048
     Dates: start: 20161125, end: 20161130
  13. LYRICA [Suspect]
     Active Substance: PREGABALIN
     Dosage: 75 MG, TWICE DAILY
     Route: 048
     Dates: start: 20171201
  14. SIMVA ARISTO [Concomitant]
     Dosage: 40 MG, ONCE DAILY
     Route: 048
     Dates: start: 2009
  15. TORASEMIDE [Concomitant]
     Active Substance: TORSEMIDE
     Dosage: 25 MG, 1X/DAY
     Route: 048
  16. ASPIRIN. [Concomitant]
     Active Substance: ASPIRIN
     Dosage: UNK
     Route: 048
  17. TORASEMID ABZ [Concomitant]
     Dosage: 35, UNK
     Route: 048
  18. PANTOZOL [Concomitant]
     Active Substance: PANTOPRAZOLE SODIUM
     Dosage: UNK
     Route: 048
  19. SIMVASTATIN. [Concomitant]
     Active Substance: SIMVASTATIN
     Dosage: 40 MG, 1X/DAY
     Dates: start: 2009
  20. LYRICA [Suspect]
     Active Substance: PREGABALIN
     Indication: NEURALGIA
     Dosage: 25 MG, TWICE DAILY
     Route: 048
     Dates: start: 20161123, end: 20161124
  21. RAMILICH [Concomitant]
     Active Substance: RAMIPRIL
     Dosage: 2.5 MG, ONCE DAILY
     Route: 048
     Dates: start: 2009
  22. TRANSTEC [Concomitant]
     Active Substance: BUPRENORPHINE
     Dosage: 70 UG, UNK (70 UG/H)
     Route: 062

REACTIONS (9)
  - Fatigue [Recovered/Resolved]
  - Weight increased [Recovered/Resolved]
  - Visual impairment [Recovered/Resolved]
  - Somnolence [Recovered/Resolved]
  - Depressed level of consciousness [Recovered/Resolved]
  - Fall [Recovered/Resolved]
  - Disturbance in attention [Recovered/Resolved]
  - Overdose [Recovered/Resolved]
  - Dizziness [Recovered/Resolved]

NARRATIVE: CASE EVENT DATE: 20161123
